FAERS Safety Report 8037967-9 (Version None)
Quarter: 2012Q1

REPORT INFORMATION
  Report Type: 
  Country: None (occurrence: None)
  Receive Date: 20120111
  Receipt Date: 20120106
  Transmission Date: 20120608
  Serious: Yes (Hospitalization, Other)
  Sender: FDA-Public Use
  Company Number: NL-ABBOTT-12P-114-0890405-00

PATIENT
  Age: 83 Year
  Sex: Male

DRUGS (2)
  1. CASODEX [Concomitant]
     Indication: PROSTATE CANCER
     Route: 048
     Dates: start: 20071201
  2. LEUPROLIDE ACETATE [Suspect]
     Indication: PROSTATE CANCER
     Route: 058
     Dates: start: 20041201

REACTIONS (3)
  - SOMNOLENCE [None]
  - ANEURYSM [None]
  - FATIGUE [None]
